FAERS Safety Report 4858601-2 (Version None)
Quarter: 2005Q4

REPORT INFORMATION
  Report Type: 
  Country: None (occurrence: None)
  Receive Date: 20051219
  Receipt Date: 20051007
  Transmission Date: 20060501
  Serious: No
  Sender: FDA-Public Use
  Company Number: US-GLAXOSMITHKLINE-A0577465A

PATIENT
  Age: 62 Year
  Sex: Female

DRUGS (5)
  1. NICODERM CQ [Suspect]
  2. STEROIDS [Concomitant]
  3. ALBUTEROL [Concomitant]
  4. ADVAIR DISKUS 250/50 [Concomitant]
  5. BACTRIM [Concomitant]

REACTIONS (2)
  - INTENTIONAL DRUG MISUSE [None]
  - NICOTINE DEPENDENCE [None]
